FAERS Safety Report 9448287 (Version 2)
Quarter: 2013Q3

REPORT INFORMATION
  Report Type: Spontaneous
  Country: US (occurrence: US)
  Receive Date: 20130808
  Receipt Date: 20130912
  Transmission Date: 20140515
  Serious: No
  Sender: FDA-Public Use
  Company Number: US-PFIZER INC-2013228225

PATIENT
  Age: 63 Year
  Sex: Female
  Weight: 59.41 kg

DRUGS (4)
  1. MORPHINE [Suspect]
     Dosage: UNK
  2. DEMEROL [Suspect]
     Dosage: UNK
  3. CODEINE [Suspect]
     Dosage: UNK
  4. MEPERIDINE [Suspect]
     Dosage: UNK

REACTIONS (1)
  - Drug hypersensitivity [Unknown]
